FAERS Safety Report 5412663-2 (Version None)
Quarter: 2007Q3

REPORT INFORMATION
  Report Type: 
  Country: None (occurrence: None)
  Receive Date: 20070813
  Receipt Date: 20070730
  Transmission Date: 20080115
  Serious: Yes (Life-Threatening, Hospitalization, Disabling)
  Sender: FDA-Public Use
  Company Number: GB-ROCHE-509812

PATIENT
  Sex: Female

DRUGS (15)
  1. ORLISTAT [Suspect]
     Indication: DRUG USE FOR UNKNOWN INDICATION
     Route: 048
     Dates: start: 20051031, end: 20070601
  2. ASPIRIN [Concomitant]
     Route: 048
  3. BUSPIRONE [Concomitant]
     Route: 048
  4. CANDESARTAN CILEXETIL [Concomitant]
     Dates: end: 20070518
  5. CHLORPROMAZINE [Concomitant]
     Dates: end: 20070501
  6. CLOMIPRAMINE HCL [Concomitant]
     Dates: end: 20070501
  7. DOXAZOSIN MESYLATE [Concomitant]
     Route: 048
  8. FUROSEMIDE [Concomitant]
     Dates: end: 20070510
  9. GALFER [Concomitant]
     Route: 048
  10. METFORMIN HCL [Concomitant]
     Dates: end: 20070518
  11. PRAVASTATIN [Concomitant]
     Route: 048
  12. QUETIAPINE FUMARATE [Concomitant]
     Dosage: ROUTE OF OROMUCOSAL USE.
     Route: 002
  13. RAMIPRIL [Concomitant]
     Dates: end: 20070518
  14. SLOZEM [Concomitant]
     Route: 048
  15. VENLAFAXINE HCL [Concomitant]
     Route: 048

REACTIONS (2)
  - NEPHROPATHY [None]
  - RENAL FAILURE CHRONIC [None]
